FAERS Safety Report 15430194 (Version 1)
Quarter: 2018Q3

REPORT INFORMATION
  Report Type: Spontaneous
  Country: US (occurrence: US)
  Receive Date: 20180920
  Receipt Date: 20180920
  Transmission Date: 20181010
  Serious: No
  Sender: FDA-Public Use
  Company Number: None

PATIENT
  Age: 67 Year

DRUGS (5)
  1. OCALIVA [Suspect]
     Active Substance: OBETICHOLIC ACID
     Indication: PRIMARY BILIARY CHOLANGITIS
     Route: 048
     Dates: start: 20180316
  2. SENOKOT [Concomitant]
     Active Substance: SENNOSIDES
  3. OMEPRAZOLE. [Concomitant]
     Active Substance: OMEPRAZOLE
  4. URSODIOL. [Concomitant]
     Active Substance: URSODIOL
  5. CETIRIZINE [Concomitant]
     Active Substance: CETIRIZINE HYDROCHLORIDE

REACTIONS (4)
  - Dysgeusia [None]
  - Hyperhidrosis [None]
  - Oral pain [None]
  - Nasopharyngitis [None]

NARRATIVE: CASE EVENT DATE: 20180818
